FAERS Safety Report 8478660-8 (Version None)
Quarter: 2012Q2

REPORT INFORMATION
  Report Type: 
  Country: None (occurrence: None)
  Receive Date: 20120629
  Receipt Date: 20120615
  Transmission Date: 20120825
  Serious: Yes (Hospitalization, Other)
  Sender: FDA-Public Use
  Company Number: JP-VERTEX PHARMACEUTICALS INC.-AE-2012-004423

PATIENT
  Age: 53 Year
  Sex: Female

DRUGS (12)
  1. PRIMPERAN TAB [Concomitant]
     Route: 048
     Dates: start: 20111222
  2. SELBEX [Concomitant]
     Route: 048
  3. MEILAX [Concomitant]
     Route: 048
  4. ZOLOFT [Concomitant]
     Route: 048
  5. MAGLAX [Concomitant]
     Route: 048
  6. BETAMETHASONE SODIUM PHOSPHATE [Concomitant]
     Route: 061
     Dates: end: 20120314
  7. RIBAVIRIN [Concomitant]
     Indication: HEPATITIS C
     Route: 048
     Dates: start: 20111221, end: 20120314
  8. TELAVIC (TELAPREVIR) [Suspect]
     Indication: HEPATITIS C
     Route: 048
     Dates: start: 20111221, end: 20120313
  9. VOLTAREN [Concomitant]
     Route: 054
     Dates: start: 20111221, end: 20120203
  10. LOXONIN [Concomitant]
     Route: 048
  11. NITRAZEPAM [Concomitant]
     Route: 048
  12. PEGINTERFERON ALFA-2B [Concomitant]
     Indication: HEPATITIS C
     Route: 058
     Dates: start: 20111221, end: 20120307

REACTIONS (2)
  - ERYTHEMA MULTIFORME [None]
  - DISSEMINATED INTRAVASCULAR COAGULATION [None]
